FAERS Safety Report 7394290-3 (Version None)
Quarter: 2011Q2

REPORT INFORMATION
  Report Type: 
  Country: None (occurrence: None)
  Receive Date: 20110405
  Receipt Date: 20110328
  Transmission Date: 20111010
  Serious: Yes (Life-Threatening, Hospitalization, Other)
  Sender: FDA-Public Use
  Company Number: IL-TEVA-273755ISR

PATIENT
  Sex: Female

DRUGS (3)
  1. METAMIZOLE [Suspect]
  2. AMOXICILLIN [Suspect]
  3. IBUPROFEN [Suspect]

REACTIONS (6)
  - JAUNDICE [None]
  - ENCEPHALOPATHY [None]
  - NAUSEA [None]
  - CHROMATURIA [None]
  - ACUTE HEPATIC FAILURE [None]
  - DEPRESSED LEVEL OF CONSCIOUSNESS [None]
